FAERS Safety Report 23480248 (Version 3)
Quarter: 2025Q2

REPORT INFORMATION
  Report Type: Spontaneous
  Country: DE (occurrence: DE)
  Receive Date: 20240205
  Receipt Date: 20250530
  Transmission Date: 20250716
  Serious: Yes (Hospitalization, Other)
  Sender: ALEXION PHARMACEUTICALS
  Company Number: 2024A028092

PATIENT
  Age: 4 Month
  Weight: 6.15 kg

DRUGS (1)
  1. BEYFORTUS [Suspect]
     Active Substance: NIRSEVIMAB-ALIP
     Indication: Immunisation
     Route: 065

REACTIONS (3)
  - Neurodermatitis [Unknown]
  - Dermatitis atopic [Unknown]
  - Rash [Unknown]
